FAERS Safety Report 8387385-9 (Version None)
Quarter: 2012Q2

REPORT INFORMATION
  Report Type: 
  Country: None (occurrence: None)
  Receive Date: 20120525
  Receipt Date: 20120510
  Transmission Date: 20120825
  Serious: Yes (Hospitalization, Congenital Anomaly)
  Sender: FDA-Public Use
  Company Number: US-ROCHE-GNE289546

PATIENT
  Sex: Female

DRUGS (13)
  1. OMALIZUMAB [Suspect]
     Indication: HYPERSENSITIVITY
     Dosage: UNK
     Dates: start: 20100821
  2. ADVAIR DISKUS 100/50 [Concomitant]
     Indication: ASTHMA
     Dosage: UNK
  3. OMALIZUMAB [Suspect]
     Indication: DERMATITIS ALLERGIC
     Dosage: UNK
     Dates: start: 20101021
  4. ZYRTEC [Concomitant]
     Indication: HYPERSENSITIVITY
     Dosage: UNK
  5. VERAMYST [Concomitant]
     Indication: HYPERSENSITIVITY
     Dosage: UNK
  6. TYLENOL [Concomitant]
     Indication: HEADACHE
     Dosage: UNK
  7. OMALIZUMAB [Suspect]
     Indication: ASTHMA
     Dosage: 375 MG, Q4W, DATE OF LAST DOSE PRIOR TO SAE: 12/FEB/2010
     Route: 058
     Dates: start: 20090304
  8. OMALIZUMAB [Suspect]
     Indication: PAPULE
  9. OMALIZUMAB [Suspect]
     Indication: ECZEMA
  10. EXCEDRIN (UNITED STATES) [Concomitant]
     Indication: HEADACHE
     Dosage: UNK
  11. OMALIZUMAB [Suspect]
     Indication: URTICARIA
     Dosage: 375 MG, Q3W
     Route: 058
     Dates: start: 20100429
  12. VITAMIN AND MINERAL PRENATAL SUPPLEMENT W/ FOLIC ACID CAP [Concomitant]
     Indication: PREGNANCY
     Dosage: UNK
  13. VENTOLIN DS [Concomitant]
     Indication: ASTHMA
     Dosage: UNK

REACTIONS (2)
  - MATERNAL EXPOSURE DURING PREGNANCY [None]
  - ARTERIOVENOUS MALFORMATION [None]
